FAERS Safety Report 11448457 (Version 2)
Quarter: 2016Q2

REPORT INFORMATION
  Report Type: Spontaneous
  Country: US (occurrence: US)
  Receive Date: 20150902
  Receipt Date: 20160512
  Transmission Date: 20160815
  Serious: Yes (Other)
  Sender: FDA-Public Use
  Company Number: US-TEVA-590471USA

PATIENT
  Age: 72 Year
  Sex: Female

DRUGS (12)
  1. PROZAC [Concomitant]
     Active Substance: FLUOXETINE HYDROCHLORIDE
     Indication: DEPRESSION
     Dosage: 10 MILLIGRAM DAILY;
  2. PERCOCET [Concomitant]
     Active Substance: ACETAMINOPHEN\OXYCODONE HYDROCHLORIDE
     Indication: PAIN
     Dosage: 20 MILLIGRAM DAILY;
     Dates: start: 2011
  3. ACIDOPHILUS [Concomitant]
     Active Substance: LACTOBACILLUS ACIDOPHILUS
     Dosage: 3 BILLION EVERY MORNING
     Dates: start: 1985
  4. PERCOCET [Concomitant]
     Active Substance: ACETAMINOPHEN\OXYCODONE HYDROCHLORIDE
     Indication: GASTRIC DISORDER
  5. IBRANCE [Suspect]
     Active Substance: PALBOCICLIB
     Indication: OVARIAN CANCER
     Dosage: 125 MILLIGRAM DAILY; 125 MG CAPSULE ONCE IN THE MORNING BY MOUTH WITH BREAKFAST
     Route: 048
     Dates: start: 20150811
  6. COMPLEX B [Concomitant]
     Active Substance: CALCIUM PANTOTHENATE\CYANOCOBALAMIN\NIACINAMIDE\PYRIDOXINE HYDROCHLORIDE\RIBOFLAVIN\THIAMINE MONONITRATE
  7. LETROZOLE. [Suspect]
     Active Substance: LETROZOLE
     Indication: OVARIAN CANCER
     Dosage: 2.5 MILLIGRAM DAILY; EVENING
     Route: 048
     Dates: start: 20150811
  8. MULTIVITAMIN [Concomitant]
     Active Substance: VITAMINS
  9. PERCOCET [Concomitant]
     Active Substance: ACETAMINOPHEN\OXYCODONE HYDROCHLORIDE
     Indication: PAIN
  10. CALCIUM [Concomitant]
     Active Substance: CALCIUM
     Dates: start: 201502
  11. VITAMIN D3 [Concomitant]
     Active Substance: CHOLECALCIFEROL
     Dates: start: 201501
  12. TRAZODONE [Concomitant]
     Active Substance: TRAZODONE HYDROCHLORIDE
     Indication: SLEEP DISORDER

REACTIONS (19)
  - Ovarian cancer [Unknown]
  - Carbohydrate antigen 125 increased [Not Recovered/Not Resolved]
  - Asthenia [Not Recovered/Not Resolved]
  - Constipation [Unknown]
  - Cough [Unknown]
  - Fatigue [Not Recovered/Not Resolved]
  - Nasal congestion [Recovering/Resolving]
  - Product use issue [Unknown]
  - Dry mouth [Recovered/Resolved]
  - Impatience [Unknown]
  - Irritability [Unknown]
  - Off label use [Unknown]
  - Dysphonia [Recovered/Resolved]
  - Head discomfort [Recovering/Resolving]
  - White blood cell count decreased [Recovered/Resolved]
  - Nasal dryness [Recovering/Resolving]
  - Nasopharyngitis [Not Recovered/Not Resolved]
  - Arthralgia [Unknown]
  - Alopecia [Unknown]

NARRATIVE: CASE EVENT DATE: 20150825
